FAERS Safety Report 10180265 (Version 2)
Quarter: 2014Q2

REPORT INFORMATION
  Report Type: Spontaneous
  Country: US (occurrence: US)
  Receive Date: 20140519
  Receipt Date: 20140519
  Transmission Date: 20141212
  Serious: No
  Sender: FDA-Public Use
  Company Number: US-AMGEN INC.-USASP2013072561

PATIENT
  Age: 76 Year
  Sex: Female

DRUGS (8)
  1. PROLIA [Suspect]
     Indication: OSTEOPOROSIS POSTMENOPAUSAL
     Dosage: UNK
     Route: 065
     Dates: start: 201309
  2. HYDROCHLOROTHIAZIDE [Concomitant]
     Dosage: 12.5 MG, UNK
  3. ICAPS                              /07499601/ [Concomitant]
     Dosage: TWO, BID
  4. MULTIVITAMINS [Concomitant]
     Dosage: 1, QD
  5. LEVOTHYROXINE [Concomitant]
     Dosage: 0.088 MG, QD
  6. METOPROLOL [Concomitant]
     Dosage: 25 MG, UNK
  7. FLUOXETINE [Concomitant]
     Dosage: 20 MG, 3 CAPS ONCE DAILY
  8. ANACIN                             /00141001/ [Concomitant]
     Indication: HEADACHE
     Dosage: UNK, AS NEEDED

REACTIONS (2)
  - Pruritus generalised [Recovered/Resolved]
  - Scratch [Unknown]
